FAERS Safety Report 5763821-9 (Version None)
Quarter: 2008Q2

REPORT INFORMATION
  Report Type: 
  Country: None (occurrence: None)
  Receive Date: 20080606
  Receipt Date: 20080606
  Transmission Date: 20081010
  Serious: Yes (Life-Threatening, Hospitalization)
  Sender: FDA-Public Use
  Company Number: None

PATIENT
  Sex: Female

DRUGS (2)
  1. LYRICA [Suspect]
     Indication: PAIN
     Dosage: 75MG QPM PO   1 OR 2 DOSES
     Route: 048
     Dates: start: 20070628
  2. LYRICA [Suspect]
     Indication: SYSTEMIC LUPUS ERYTHEMATOSUS
     Dosage: 75MG QPM PO   1 OR 2 DOSES
     Route: 048
     Dates: start: 20070628

REACTIONS (1)
  - SOMNOLENCE [None]
